FAERS Safety Report 25106133 (Version 2)
Quarter: 2025Q2

REPORT INFORMATION
  Report Type: Spontaneous
  Country: JP (occurrence: JP)
  Receive Date: 20250321
  Receipt Date: 20250404
  Transmission Date: 20250717
  Serious: No
  Sender: PFIZER
  Company Number: JP-PFIZER INC-202400303474

PATIENT

DRUGS (1)
  1. COMIRNATY (BRETOVAMERAN) [Suspect]
     Active Substance: BRETOVAMERAN
     Indication: COVID-19 immunisation
     Dates: start: 20241107, end: 20241107

REACTIONS (1)
  - Syringe issue [Unknown]

NARRATIVE: CASE EVENT DATE: 20241107
